FAERS Safety Report 6126972-5 (Version None)
Quarter: 2009Q1

REPORT INFORMATION
  Report Type: 
  Country: None (occurrence: None)
  Receive Date: 20090320
  Receipt Date: 20090309
  Transmission Date: 20090719
  Serious: Yes (Hospitalization)
  Sender: FDA-Public Use
  Company Number: AR-TEVA-187535ISR

PATIENT
  Sex: Female

DRUGS (2)
  1. METHOTREXATE [Suspect]
     Indication: RHEUMATOID ARTHRITIS
     Route: 048
     Dates: start: 20051222
  2. ABATACEPT:PLACEBO [Suspect]
     Indication: RHEUMATOID ARTHRITIS
     Dates: start: 20081008

REACTIONS (1)
  - INFECTIVE TENOSYNOVITIS [None]
